FAERS Safety Report 4834681-5 (Version None)
Quarter: 2005Q4

REPORT INFORMATION
  Report Type: 
  Country: None (occurrence: None)
  Receive Date: 20051122
  Receipt Date: 20051116
  Transmission Date: 20060501
  Serious: Yes (Death, Life-Threatening, Hospitalization)
  Sender: FDA-Public Use
  Company Number: ES-GLAXOSMITHKLINE-B0400887A

PATIENT
  Age: 35 Year
  Sex: Male

DRUGS (7)
  1. AUGMENTIN [Suspect]
     Indication: RESPIRATORY DISORDER
     Dosage: 1G THREE TIMES PER DAY
     Route: 042
     Dates: start: 20050702, end: 20050708
  2. BAYCIP [Suspect]
     Indication: URETHRAL DISORDER
     Dosage: 500MG TWICE PER DAY
     Dates: start: 20050707, end: 20050717
  3. AREMIS [Suspect]
     Indication: MENTAL RETARDATION SEVERITY UNSPECIFIED
     Dosage: 50MG PER DAY
     Route: 048
     Dates: start: 20050723, end: 20050101
  4. SINOGAN [Suspect]
     Indication: MENTAL RETARDATION SEVERITY UNSPECIFIED
     Dosage: 50MG PER DAY
     Route: 048
     Dates: end: 20050101
  5. RIVOTRIL [Suspect]
     Indication: MENTAL RETARDATION SEVERITY UNSPECIFIED
     Dosage: 1MG SEE DOSAGE TEXT
     Route: 048
     Dates: end: 20050101
  6. RISPERDAL [Suspect]
     Indication: MENTAL RETARDATION SEVERITY UNSPECIFIED
     Dosage: 3MG SEE DOSAGE TEXT
     Route: 048
     Dates: end: 20050101
  7. OPIREN [Suspect]
     Indication: DRUG USE FOR UNKNOWN INDICATION
     Route: 048
     Dates: start: 20050601, end: 20050601

REACTIONS (2)
  - AGRANULOCYTOSIS [None]
  - PNEUMONIA [None]
